FAERS Safety Report 6404948-8 (Version None)
Quarter: 2009Q4

REPORT INFORMATION
  Report Type: 
  Country: None (occurrence: None)
  Receive Date: 20091019
  Receipt Date: 20090918
  Transmission Date: 20100525
  Serious: No
  Sender: FDA-Public Use
  Company Number: US-BAYER-200928642NA

PATIENT
  Age: 59 Year
  Sex: Male

DRUGS (3)
  1. LEVITRA [Suspect]
     Indication: ERECTILE DYSFUNCTION
     Dosage: UNIT DOSE: 10 MG
     Route: 048
     Dates: start: 20070101
  2. LEVITRA [Suspect]
     Dosage: AS USED: 5 MG  UNIT DOSE: 10 MG
     Route: 048
     Dates: start: 20090727
  3. FLOMAX [Concomitant]
     Indication: DYSURIA
     Dosage: TOTAL DAILY DOSE: 4 MG
     Route: 048
     Dates: start: 20080101

REACTIONS (1)
  - ERECTILE DYSFUNCTION [None]
